FAERS Safety Report 22263581 (Version 1)
Quarter: 2023Q2

REPORT INFORMATION
  Report Type: Spontaneous
  Country: US (occurrence: US)
  Receive Date: 20230428
  Receipt Date: 20230428
  Transmission Date: 20230721
  Serious: No
  Sender: FDA-Public Use
  Company Number: US-AMGEN-USASP2023070495

PATIENT
  Sex: Male

DRUGS (24)
  1. AIMOVIG [Suspect]
     Active Substance: ERENUMAB-AOOE
     Indication: Migraine without aura
     Dosage: UNK
     Route: 065
  2. AIMOVIG [Suspect]
     Active Substance: ERENUMAB-AOOE
     Dosage: 140 MILLIGRAM
     Route: 065
  3. NEURONTIN [Concomitant]
     Active Substance: GABAPENTIN
     Indication: Diabetic neuropathy
     Dosage: 300 MILLIGRAM, TID
     Route: 048
     Dates: start: 20220112, end: 20221107
  4. NEURONTIN [Concomitant]
     Active Substance: GABAPENTIN
     Indication: Neuralgia
  5. NURTEC ODT [Concomitant]
     Active Substance: RIMEGEPANT SULFATE
     Indication: Migraine prophylaxis
     Dosage: 75 MILLIGRAM, EVERY OTHER DAY
     Dates: start: 20220112, end: 20220309
  6. BOTOX [Concomitant]
     Active Substance: ONABOTULINUMTOXINA
     Indication: Migraine
  7. EMGALITY [Concomitant]
     Active Substance: GALCANEZUMAB-GNLM
     Indication: Migraine
  8. XARELTO [Concomitant]
     Active Substance: RIVAROXABAN
     Indication: Cardiac failure
     Dosage: 20 MILLIGRAM, QD
     Route: 048
     Dates: start: 20211101, end: 20220913
  9. XARELTO [Concomitant]
     Active Substance: RIVAROXABAN
     Indication: Atrial fibrillation
  10. XARELTO [Concomitant]
     Active Substance: RIVAROXABAN
     Indication: Thrombosis prophylaxis
  11. OXYGEN [Concomitant]
     Active Substance: OXYGEN
     Indication: Hypoxia
  12. OXYGEN [Concomitant]
     Active Substance: OXYGEN
     Indication: Obstructive sleep apnoea syndrome
  13. Alcohol swabs [Concomitant]
     Dosage: EVERY 7 DAYS FOR USE PRIOR TO MEDICATION ADMINISTRATION
     Route: 061
     Dates: start: 20200923, end: 20221107
  14. ZYLOPRIM [Concomitant]
     Active Substance: ALLOPURINOL
     Dosage: 300 MILLIGRAM, QD (EVERY MORNING)
     Route: 048
     Dates: start: 20210429, end: 20221107
  15. NORVASC [Concomitant]
     Active Substance: AMLODIPINE BESYLATE
     Indication: Hypertension
     Dosage: 10 MILLIGRAM, QD
     Route: 048
     Dates: start: 20211101, end: 20220913
  16. COLCRYS [Concomitant]
     Active Substance: COLCHICINE
     Indication: Gout
     Dosage: 0.6 MILLIGRAM, QD
     Route: 048
     Dates: start: 20210425, end: 20220123
  17. TRULICITY [Concomitant]
     Active Substance: DULAGLUTIDE
     Indication: Diabetes mellitus
     Dosage: 0.75MG/0.5ML, QWK
     Route: 058
     Dates: start: 20200923, end: 20220123
  18. DRISDOL [Concomitant]
     Active Substance: ERGOCALCIFEROL
     Dosage: 50,000 UNIT, QWK
     Route: 048
     Dates: start: 20200522, end: 20220123
  19. ZETIA [Concomitant]
     Active Substance: EZETIMIBE
     Dosage: 10 MILLIGRAM, QD
     Route: 048
     Dates: start: 20200915, end: 20220913
  20. OXYGEN [Concomitant]
     Active Substance: OXYGEN
     Dosage: 3 LIT/MIN
  21. SYNTHROID [Concomitant]
     Active Substance: LEVOTHYROXINE SODIUM
     Dosage: 50 MICROGRAM, QD
     Route: 048
     Dates: start: 20200915, end: 20221107
  22. MYRBETRIQ [Concomitant]
     Active Substance: MIRABEGRON
     Indication: Micturition urgency
     Dosage: 25 MILLIGRAM, QD
     Route: 048
     Dates: start: 20201001, end: 20220123
  23. CRESTOR [Concomitant]
     Active Substance: ROSUVASTATIN CALCIUM
     Dosage: 20 MILLIGRAM, QD
     Route: 048
     Dates: start: 20210422, end: 20220913
  24. DIOVAN [Concomitant]
     Active Substance: VALSARTAN
     Indication: Hypertensive heart disease
     Dosage: 320 MILLIGRAM, QD
     Route: 048
     Dates: start: 20211101, end: 20220913

REACTIONS (1)
  - Therapeutic product effect incomplete [Not Recovered/Not Resolved]
